FAERS Safety Report 13321996 (Version 8)
Quarter: 2017Q4

REPORT INFORMATION
  Report Type: Spontaneous
  Country: US (occurrence: IE)
  Receive Date: 20170309
  Receipt Date: 20171227
  Transmission Date: 20180320
  Serious: Yes (Hospitalization)
  Sender: FDA-Public Use
  Company Number: US-PFIZER INC-2017092860

PATIENT
  Age: 75 Year
  Sex: Male
  Weight: 63.5 kg

DRUGS (16)
  1. SIMVASTATIN. [Concomitant]
     Active Substance: SIMVASTATIN
     Indication: BLOOD CHOLESTEROL
     Dosage: 40 MG, 1X/DAY
     Route: 048
  2. FLUOXETINE [Concomitant]
     Active Substance: FLUOXETINE HYDROCHLORIDE
     Indication: DEPRESSION
     Dosage: 10 MG, 1X/DAY
     Route: 048
  3. COZAAR [Concomitant]
     Active Substance: LOSARTAN POTASSIUM
     Dosage: UNK (LATE 60^S EARLY 70^S)
  4. DOXYCYCLINE. [Concomitant]
     Active Substance: DOXYCYCLINE
     Indication: BLEPHARITIS
     Dosage: 100 MG, 1X/DAY
     Route: 048
  5. DITROPAN [Concomitant]
     Active Substance: OXYBUTYNIN CHLORIDE
     Dosage: UNK (2 1/2 YEARS AGO)
  6. OXYBUTYN [Concomitant]
     Indication: BLADDER DISORDER
     Dosage: 10 MG, 1X/DAY
     Route: 048
  7. OXYBUTIN [Concomitant]
     Active Substance: OXYBUTYNIN
     Indication: URINARY INCONTINENCE
     Dosage: 10 MG, 1X/DAY
     Route: 048
  8. SUTENT [Suspect]
     Active Substance: SUNITINIB MALATE
     Dosage: 37.5 MG, CYCLIC (1 A DAY 28 ON 14 OFF)
     Dates: start: 20170429
  9. LOSARTAN. [Concomitant]
     Active Substance: LOSARTAN
     Indication: BLOOD PRESSURE MEASUREMENT
     Dosage: 25 MG, DAILY
     Route: 048
  10. SUTENT [Suspect]
     Active Substance: SUNITINIB MALATE
     Dosage: 37.5 MG, CYCLIC (ONCE DAILY BY MOUTH FOR 28 DAYS AND THEN OFF FOR 14 DAYS)
     Dates: start: 201611
  11. PROZAC [Concomitant]
     Active Substance: FLUOXETINE HYDROCHLORIDE
     Indication: DEPRESSION
     Dosage: 10 MG, 1X/DAY
     Route: 048
  12. SUTENT [Suspect]
     Active Substance: SUNITINIB MALATE
     Indication: METASTATIC RENAL CELL CARCINOMA
     Dosage: 37.5 MG, CYCLIC (28 DAYS ON/14 DAYS OFF)
     Dates: start: 201612
  13. MEGACE [Concomitant]
     Active Substance: MEGESTROL ACETATE
     Dosage: UNK
  14. LOSARTAN. [Concomitant]
     Active Substance: LOSARTAN
     Dosage: 25 MG, 1X/DAY
     Route: 048
  15. SUTENT [Suspect]
     Active Substance: SUNITINIB MALATE
     Dosage: 37.5 MG, 1X/DAY
     Route: 048
     Dates: start: 2016
  16. SUTENT [Suspect]
     Active Substance: SUNITINIB MALATE
     Dosage: 37.5 MG, CYCLIC (D1-28 Q 42 DAYS)
     Route: 048
     Dates: start: 20161201

REACTIONS (8)
  - Haematuria [Recovered/Resolved]
  - Stomatitis [Not Recovered/Not Resolved]
  - Tongue discomfort [Not Recovered/Not Resolved]
  - Blood urine present [Not Recovered/Not Resolved]
  - Oral pain [Unknown]
  - Fatigue [Not Recovered/Not Resolved]
  - Oral discomfort [Recovered/Resolved]
  - Glossodynia [Unknown]

NARRATIVE: CASE EVENT DATE: 201702
